FAERS Safety Report 25245886 (Version 1)
Quarter: 2025Q2

REPORT INFORMATION
  Report Type: Spontaneous
  Country: US (occurrence: None)
  Receive Date: 20250426
  Receipt Date: 20250426
  Transmission Date: 20250717
  Serious: Yes (Hospitalization)
  Sender: FDA-CTU
  Company Number: None

PATIENT
  Sex: Female

DRUGS (2)
  1. VERZENIO [Suspect]
     Active Substance: ABEMACICLIB
     Indication: Malignant anorectal neoplasm
     Dosage: 50 MG TWICE A DAY ORAL
     Route: 048
  2. VERZENIO [Suspect]
     Active Substance: ABEMACICLIB
     Indication: Gastric cancer stage 0

REACTIONS (2)
  - Chronic obstructive pulmonary disease [None]
  - Pneumonia [None]
